FAERS Safety Report 11050584 (Version 1)
Quarter: 2015Q2

REPORT INFORMATION
  Report Type: Spontaneous
  Country: US (occurrence: None)
  Receive Date: 20150420
  Receipt Date: 20150420
  Transmission Date: 20150821
  Serious: Yes (Disabling)
  Sender: FDA-Public Use
  Company Number: None

PATIENT
  Age: 63 Year
  Sex: Female
  Weight: 62.14 kg

DRUGS (9)
  1. COENZYME Q10 [Concomitant]
     Active Substance: UBIDECARENONE
  2. DHA [Concomitant]
     Active Substance: DIETARY SUPPLEMENT
  3. VITAMIN B12 [Concomitant]
     Active Substance: CYANOCOBALAMIN
  4. VITAMIN E [Concomitant]
     Active Substance: .ALPHA.-TOCOPHEROL
  5. CALCIUM + VITAMIN D [Concomitant]
     Active Substance: CALCIUM\VITAMIN D
  6. VITAMIN C [Concomitant]
     Active Substance: ASCORBIC ACID
  7. MELOXICAM 15 MG LUPIN PHARMACEU [Suspect]
     Active Substance: MELOXICAM
     Indication: HEADACHE
     Dosage: 1 PILL ONCE DAILY TAKEN BY MOUTH
     Route: 048
     Dates: start: 20150417, end: 20150418
  8. MULTIVITAMIN [Concomitant]
     Active Substance: VITAMINS
  9. PHENYLEPHRINE HCL [Concomitant]
     Active Substance: PHENYLEPHRINE HYDROCHLORIDE

REACTIONS (11)
  - Arthralgia [None]
  - Headache [None]
  - Joint swelling [None]
  - Decreased appetite [None]
  - Myalgia [None]
  - Musculoskeletal stiffness [None]
  - Fatigue [None]
  - Influenza like illness [None]
  - Back pain [None]
  - Asthenia [None]
  - Pyrexia [None]

NARRATIVE: CASE EVENT DATE: 20150418
